FAERS Safety Report 18181574 (Version 1)
Quarter: 2020Q3

REPORT INFORMATION
  Report Type: Spontaneous
  Country: US (occurrence: US)
  Receive Date: 20200821
  Receipt Date: 20200821
  Transmission Date: 20201103
  Serious: No
  Sender: FDA-Public Use
  Company Number: US-VERITY PHARMACEUTICALS, INC.-2020VTY00220

PATIENT
  Sex: Female

DRUGS (1)
  1. TRIPTORELIN PAMOATE [Suspect]
     Active Substance: TRIPTORELIN PAMOATE
     Dosage: UNK, SINGLE
     Route: 030
     Dates: start: 20190114, end: 20190114

REACTIONS (4)
  - Vaginal discharge [Recovered/Resolved]
  - Drug ineffective [Unknown]
  - Vaginal haemorrhage [Recovered/Resolved]
  - Breast swelling [Not Recovered/Not Resolved]
